FAERS Safety Report 23895491 (Version 1)
Quarter: 2024Q2

REPORT INFORMATION
  Report Type: Spontaneous
  Country: GB (occurrence: GB)
  Receive Date: 20240524
  Receipt Date: 20240524
  Transmission Date: 20240715
  Serious: Yes (Hospitalization)
  Sender: FDA-Public Use
  Company Number: GB-RANBAXY-2010RR-33795

PATIENT
  Age: 53 Year
  Sex: Female

DRUGS (3)
  1. OMEPRAZOLE [Suspect]
     Active Substance: DONEPEZIL HYDROCHLORIDE\OMEPRAZOLE\OMEPRAZOLE MAGNESIUM
     Indication: Gastrooesophageal reflux disease
     Dosage: UNK
     Route: 065
  2. PANTOPRAZOLE [Suspect]
     Active Substance: PANTOPRAZOLE
     Indication: Gastrooesophageal reflux disease
     Dosage: 40 MG 1 IN DAY
     Route: 065
  3. RANITIDINE [Concomitant]
     Active Substance: RANITIDINE
     Indication: Product used for unknown indication
     Dosage: UNK
     Route: 065

REACTIONS (6)
  - Hypocalcaemia [Recovering/Resolving]
  - Hypomagnesaemia [Recovered/Resolved]
  - Chronic obstructive pulmonary disease [Unknown]
  - Muscle spasms [Unknown]
  - Paraesthesia [Unknown]
  - Lethargy [Unknown]

NARRATIVE: CASE EVENT DATE: 20070101
